FAERS Safety Report 4706586-1 (Version None)
Quarter: 2005Q3

REPORT INFORMATION
  Report Type: 
  Country: None (occurrence: None)
  Receive Date: 20050705
  Receipt Date: 20050623
  Transmission Date: 20060218
  Serious: Yes (Life-Threatening, Hospitalization)
  Sender: FDA-Public Use
  Company Number: 200511305DE

PATIENT
  Age: 62 Year
  Sex: Male
  Weight: 88 kg

DRUGS (1)
  1. CODE UNBROKEN [Suspect]
     Indication: MULTIPLE SYSTEM ATROPHY
     Route: 048
     Dates: start: 20010221, end: 20010806

REACTIONS (2)
  - PERITONEAL DIALYSIS [None]
  - RENAL FAILURE ACUTE [None]
